FAERS Safety Report 12180247 (Version 1)
Quarter: 2016Q1

REPORT INFORMATION
  Report Type: Spontaneous
  Country: US (occurrence: US)
  Receive Date: 20160315
  Receipt Date: 20160315
  Transmission Date: 20160526
  Serious: No
  Sender: FDA-Public Use
  Company Number: US-BAYER-2016-050329

PATIENT
  Age: 76 Year
  Sex: Male
  Weight: 78.5 kg

DRUGS (1)
  1. LOTRIMIN ULTRA ANTIFUNGAL [Suspect]
     Active Substance: BUTENAFINE HYDROCHLORIDE
     Indication: FUNGAL INFECTION
     Dosage: 1 DF, ONCE
     Route: 061
     Dates: start: 20160311

REACTIONS (1)
  - Product use issue [None]

NARRATIVE: CASE EVENT DATE: 20160311
